FAERS Safety Report 6047786-0 (Version None)
Quarter: 2009Q1

REPORT INFORMATION
  Report Type: 
  Country: None (occurrence: None)
  Receive Date: 20090123
  Receipt Date: 20090113
  Transmission Date: 20090719
  Serious: Yes (Hospitalization)
  Sender: FDA-Public Use
  Company Number: US-AMGEN-QUU328561

PATIENT
  Age: 68 Year
  Sex: Female

DRUGS (2)
  1. ENBREL [Suspect]
     Indication: RHEUMATOID ARTHRITIS
     Route: 058
  2. PREDNISONE [Concomitant]
     Route: 030

REACTIONS (8)
  - CONFUSIONAL STATE [None]
  - HAEMOPHILUS SEPSIS [None]
  - INFLUENZA LIKE ILLNESS [None]
  - LETHARGY [None]
  - MENINGITIS HAEMOPHILUS [None]
  - PNEUMONIA HAEMOPHILUS [None]
  - RHEUMATOID ARTHRITIS [None]
  - UNRESPONSIVE TO STIMULI [None]
